FAERS Safety Report 8077537-X (Version None)
Quarter: 2012Q1

REPORT INFORMATION
  Report Type: 
  Country: None (occurrence: None)
  Receive Date: 20120127
  Receipt Date: 20120118
  Transmission Date: 20120608
  Serious: Yes (Other)
  Sender: FDA-Public Use
  Company Number: JP-ASTRAZENECA-2012SE04354

PATIENT
  Sex: Male

DRUGS (1)
  1. CASODEX [Suspect]
     Route: 048

REACTIONS (3)
  - TONGUE NEOPLASM MALIGNANT STAGE UNSPECIFIED [None]
  - ORAL PAIN [None]
  - HYPOAESTHESIA ORAL [None]
